FAERS Safety Report 13204381 (Version 1)
Quarter: 2017Q1

REPORT INFORMATION
  Report Type: Spontaneous
  Country: JP (occurrence: JP)
  Receive Date: 20170209
  Receipt Date: 20170209
  Transmission Date: 20170428
  Serious: Yes (Hospitalization)
  Sender: FDA-Public Use
  Company Number: JP-JNJFOC-20170208533

PATIENT
  Age: 51 Year
  Sex: Male
  Weight: 66 kg

DRUGS (4)
  1. SUINY [Concomitant]
     Active Substance: ANAGLIPTIN
     Indication: TYPE 2 DIABETES MELLITUS
     Route: 048
     Dates: start: 20160212
  2. TRESIBA [Concomitant]
     Active Substance: INSULIN DEGLUDEC
     Indication: TYPE 2 DIABETES MELLITUS
     Route: 051
     Dates: start: 20140822
  3. LIPIDIL [Concomitant]
     Active Substance: FENOFIBRATE
     Route: 048
     Dates: start: 20120425
  4. CANAGLU [Suspect]
     Active Substance: CANAGLIFLOZIN
     Indication: TYPE 2 DIABETES MELLITUS
     Route: 048
     Dates: start: 20151218

REACTIONS (1)
  - Fracture [Not Recovered/Not Resolved]
